FAERS Safety Report 16317727 (Version 2)
Quarter: 2019Q2

REPORT INFORMATION
  Report Type: Report from Study
  Country: IT (occurrence: IT)
  Receive Date: 20190516
  Receipt Date: 20190524
  Transmission Date: 20190711
  Serious: Yes (Life-Threatening)
  Sender: FDA-Public Use
  Company Number: IT-ROCHE-2317945

PATIENT
  Age: 50 Year
  Sex: Female
  Weight: 69 kg

DRUGS (12)
  1. RITUXIMAB. [Suspect]
     Active Substance: RITUXIMAB
     Indication: PRODUCT USED FOR UNKNOWN INDICATION
     Dosage: UNK
     Route: 065
     Dates: start: 20181103
  2. RITUXIMAB. [Suspect]
     Active Substance: RITUXIMAB
     Dosage: UNK
     Route: 065
     Dates: start: 20180810
  3. RITUXIMAB. [Suspect]
     Active Substance: RITUXIMAB
     Indication: DIFFUSE LARGE B-CELL LYMPHOMA
     Dosage: BRAND NAME: TRUXIMA
     Route: 065
     Dates: start: 20180921
  4. RITUXIMAB. [Suspect]
     Active Substance: RITUXIMAB
     Dosage: 667.50 MG
     Route: 065
     Dates: start: 20180705
  5. CYCLOPHOSPHAMIDE. [Suspect]
     Active Substance: CYCLOPHOSPHAMIDE
     Indication: DIFFUSE LARGE B-CELL LYMPHOMA
     Dosage: UNK
     Route: 065
  6. DOXORUBICIN [Suspect]
     Active Substance: DOXORUBICIN
     Indication: DIFFUSE LARGE B-CELL LYMPHOMA
     Dosage: UNK
     Route: 065
  7. RITUXIMAB. [Suspect]
     Active Substance: RITUXIMAB
     Dosage: 667.50 MG
     Route: 065
     Dates: start: 20180831
  8. RITUXIMAB. [Suspect]
     Active Substance: RITUXIMAB
     Dosage: 667.50 MG
     Route: 065
     Dates: start: 20181012
  9. RITUXIMAB. [Suspect]
     Active Substance: RITUXIMAB
     Dosage: 667.50 MG
     Route: 065
     Dates: start: 20181124
  10. PREDNISONE. [Suspect]
     Active Substance: PREDNISONE
     Indication: DIFFUSE LARGE B-CELL LYMPHOMA
     Dosage: UNK
     Route: 065
  11. RITUXIMAB. [Suspect]
     Active Substance: RITUXIMAB
     Dosage: 667.50 MG
     Route: 065
     Dates: start: 20180720
  12. VINCRISTINE [Suspect]
     Active Substance: VINCRISTINE
     Indication: DIFFUSE LARGE B-CELL LYMPHOMA
     Dosage: UNK
     Route: 065

REACTIONS (4)
  - Sensation of foreign body [Recovered/Resolved]
  - Asthenia [Recovered/Resolved]
  - Neutropenia [Recovered/Resolved]
  - Nausea [Recovered/Resolved]

NARRATIVE: CASE EVENT DATE: 20180705
